FAERS Safety Report 8857256 (Version 2)
Quarter: 2013Q2

REPORT INFORMATION
  Report Type: Report from Study
  Country: JP (occurrence: JP)
  Receive Date: 20121024
  Receipt Date: 20130522
  Transmission Date: 20140414
  Serious: Yes (Hospitalization)
  Sender: FDA-Public Use
  Company Number: PHHO2012JP014949

PATIENT
  Age: 47 Year
  Sex: Male
  Weight: 92 kg

DRUGS (4)
  1. BLINDED LCZ696 [Suspect]
     Indication: ESSENTIAL HYPERTENSION
     Dosage: DOUBLE BLINDED
     Route: 048
     Dates: start: 20120803, end: 20121010
  2. BLINDED NO TREATMENT RECEIVED [Suspect]
     Indication: ESSENTIAL HYPERTENSION
     Dosage: DOUBLE BLINDED
     Route: 048
     Dates: start: 20120803, end: 20121010
  3. BLINDED OLMESARTAN [Suspect]
     Indication: ESSENTIAL HYPERTENSION
     Dosage: DOUBLE BLINDED
     Route: 048
     Dates: start: 20120803, end: 20121010
  4. OLMESARTAN MEDOXOMIL [Concomitant]
     Indication: ESSENTIAL HYPERTENSION
     Dosage: 20 MG, UNK
     Route: 048
     Dates: start: 20120814, end: 20121010

REACTIONS (1)
  - Bile duct stone [Recovered/Resolved]
